FAERS Safety Report 21453782 (Version 2)
Quarter: 2022Q4

REPORT INFORMATION
  Report Type: Spontaneous
  Country: US (occurrence: US)
  Receive Date: 20221013
  Receipt Date: 20221212
  Transmission Date: 20230112
  Serious: Yes (Other)
  Sender: FDA-Public Use
  Company Number: US-PFIZER INC-202201221605

PATIENT
  Age: 62 Year
  Sex: Male
  Weight: 93.44 kg

DRUGS (1)
  1. DEPO-TESTOSTERONE [Suspect]
     Active Substance: TESTOSTERONE CYPIONATE
     Indication: Andropause
     Dosage: 0.5 ML, CYCLIC (ONCE A WEEK BY INJECTION)

REACTIONS (6)
  - Product dose omission issue [Unknown]
  - Cognitive disorder [Unknown]
  - Sexual dysfunction [Unknown]
  - Malaise [Unknown]
  - Product storage error [Unknown]
  - Product deposit [Unknown]

NARRATIVE: CASE EVENT DATE: 20220901
